FAERS Safety Report 5726324-3 (Version None)
Quarter: 2008Q2

REPORT INFORMATION
  Report Type: 
  Country: None (occurrence: None)
  Receive Date: 20080502
  Receipt Date: 20080428
  Transmission Date: 20081010
  Serious: Yes (Disabling)
  Sender: FDA-Public Use
  Company Number: JP-BOEHRINGER INGELHEIM GMBH, GERMANY-2008-BP-04681NB

PATIENT
  Age: 82 Year
  Sex: Male

DRUGS (3)
  1. SPIRIVA [Suspect]
     Route: 055
     Dates: start: 20071101
  2. SEREVENT [Concomitant]
     Route: 055
  3. BLOPRESS [Concomitant]
     Route: 048

REACTIONS (1)
  - PULMONARY FUNCTION TEST DECREASED [None]
